FAERS Safety Report 7615806-5 (Version None)
Quarter: 2011Q3

REPORT INFORMATION
  Report Type: 
  Country: None (occurrence: None)
  Receive Date: 20110718
  Receipt Date: 20110718
  Transmission Date: 20111222
  Serious: Yes (Hospitalization)
  Sender: FDA-Public Use
  Company Number: None

PATIENT
  Sex: Female
  Weight: 64.6 kg

DRUGS (2)
  1. CISPLATIN [Suspect]
     Dosage: 210 MG
     Dates: end: 20110613
  2. PACLITAXEL [Suspect]
     Dosage: 420 MG
     Dates: end: 20110613

REACTIONS (7)
  - NAUSEA [None]
  - VOMITING [None]
  - DIARRHOEA [None]
  - HYPOPHAGIA [None]
  - BLOOD PRESSURE SYSTOLIC DECREASED [None]
  - HEART RATE INCREASED [None]
  - ASTHENIA [None]
